FAERS Safety Report 8047056-5 (Version None)
Quarter: 2012Q1

REPORT INFORMATION
  Report Type: 
  Country: None (occurrence: None)
  Receive Date: 20120116
  Receipt Date: 20120105
  Transmission Date: 20120608
  Serious: Yes (Death)
  Sender: FDA-Public Use
  Company Number: US-JNJFOC-20111005707

PATIENT
  Sex: Male
  Weight: 86.18 kg

DRUGS (3)
  1. FLAXSEED OIL [Concomitant]
  2. ACETAMINOPHEN [Suspect]
     Indication: PRODUCT USED FOR UNKNOWN INDICATION
  3. ACETAMINOPHEN [Suspect]

REACTIONS (4)
  - OVERDOSE [None]
  - DRUG ABUSE [None]
  - MULTI-ORGAN FAILURE [None]
  - HEPATIC FAILURE [None]
